FAERS Safety Report 8242909-7 (Version None)
Quarter: 2012Q1

REPORT INFORMATION
  Report Type: 
  Country: None (occurrence: None)
  Receive Date: 20120329
  Receipt Date: 20120321
  Transmission Date: 20120608
  Serious: Yes (Hospitalization)
  Sender: FDA-Public Use
  Company Number: US-UCBSA-037510

PATIENT
  Age: 67 Year
  Sex: Male
  Weight: 90.8 kg

DRUGS (20)
  1. LACOSAMIDE [Suspect]
     Indication: EPILEPSY
     Route: 048
     Dates: start: 20110505
  2. LAMICTAL [Concomitant]
     Dates: start: 20110616, end: 20110627
  3. IRON [Concomitant]
     Indication: ANAEMIA
     Dates: start: 20090101, end: 20110720
  4. FISH OIL [Concomitant]
     Indication: MEDICAL DIET
     Dates: start: 20100101, end: 20110720
  5. LAMICTAL [Concomitant]
     Dates: start: 20110603, end: 20110614
  6. LAMICTAL [Concomitant]
     Dates: start: 20110720, end: 20110720
  7. METOPROLOL SUCCINATE [Concomitant]
     Indication: HYPERTENSION
     Dates: start: 20030101, end: 20110720
  8. GLUCOSAMIDE [Concomitant]
     Indication: ARTHRITIS
     Dates: start: 20100101, end: 20110720
  9. LAMICTAL [Concomitant]
     Dates: start: 20110721, end: 20110724
  10. LAMICTAL [Concomitant]
     Dosage: 200 MG (QAM), 300 MG (QPM)
     Dates: start: 20110725, end: 20110725
  11. FLUOXETINE [Concomitant]
     Dates: start: 20110723, end: 20110726
  12. LAMICTAL [Concomitant]
     Indication: EPILEPSY
     Dates: start: 20080101, end: 20110602
  13. LAMICTAL [Concomitant]
     Dates: start: 20110715, end: 20110718
  14. LAMICTAL [Concomitant]
     Dosage: 100 MG(QAM) ,50 MG(QPM)
     Dates: start: 20110719, end: 20110719
  15. LAMICTAL [Concomitant]
     Dates: start: 20110726
  16. FLUOXETINE [Concomitant]
     Indication: DEPRESSION
     Dates: start: 20090101, end: 20110720
  17. LAMICTAL [Concomitant]
     Dosage: 300 MG (QAM), 200 MG (QPM)
     Dates: start: 20110615, end: 20110615
  18. LAMICTAL [Concomitant]
     Dates: start: 20110628, end: 20110707
  19. ASPIRIN [Concomitant]
     Indication: HEADACHE
     Dosage: 1 TAB AS REQUIRED
     Dates: start: 20110707
  20. RANITIDINE [Concomitant]
     Indication: DYSPEPSIA
     Dates: start: 20010101

REACTIONS (1)
  - CONVULSION [None]
